FAERS Safety Report 5848397-X (Version None)
Quarter: 2008Q3

REPORT INFORMATION
  Report Type: 
  Country: None (occurrence: None)
  Receive Date: 20080815
  Receipt Date: 20080815
  Transmission Date: 20090109
  Serious: No
  Sender: FDA-Public Use
  Company Number: None

PATIENT
  Age: 43 Year
  Sex: Female
  Weight: 64.4108 kg

DRUGS (10)
  1. WARFARIN SODIUM [Suspect]
     Indication: ATRIAL FIBRILLATION
     Dosage: 7.5 MG DAILY PO, MANY YEARS -}5 YEARS-
     Route: 048
  2. WARFARIN SODIUM [Suspect]
     Indication: MITRAL VALVE REPLACEMENT
     Dosage: 7.5 MG DAILY PO, MANY YEARS -}5 YEARS-
     Route: 048
  3. TORSEMIDE [Suspect]
     Indication: OEDEMA
     Dosage: 40MG AM, 20MG PM BID PO, STARTED 6/1/07
     Route: 048
  4. DIGOXIN [Concomitant]
  5. CARVEDILOL [Concomitant]
  6. SPIRONOLACTONE [Concomitant]
  7. FUROSEMIDE [Concomitant]
  8. LISINOPRIL [Concomitant]
  9. ASPIRIN [Concomitant]
  10. LEVOTHYROXINE [Concomitant]

REACTIONS (6)
  - ABDOMINAL DISTENSION [None]
  - EJECTION FRACTION DECREASED [None]
  - FAMILY STRESS [None]
  - FATIGUE [None]
  - INTERNATIONAL NORMALISED RATIO FLUCTUATION [None]
  - WEIGHT FLUCTUATION [None]
